FAERS Safety Report 9070464 (Version 3)
Quarter: 2013Q4

REPORT INFORMATION
  Report Type: Report from Study
  Country: CA (occurrence: CA)
  Receive Date: 20130215
  Receipt Date: 20131223
  Transmission Date: 20140711
  Serious: Yes (Hospitalization)
  Sender: FDA-Public Use
  Company Number: CA-JNJFOC-20130204440

PATIENT
  Age: 72 Year
  Sex: Male
  Weight: 83.46 kg

DRUGS (5)
  1. SIMPONI [Suspect]
     Indication: PSORIATIC ARTHROPATHY
     Route: 058
     Dates: start: 20120301, end: 201211
  2. METHOTREXATE [Concomitant]
     Indication: PSORIATIC ARTHROPATHY
     Route: 058
  3. BISOPROLOL [Concomitant]
     Indication: HYPERTENSION
     Route: 048
  4. CRESTOR [Concomitant]
     Indication: HYPERLIPIDAEMIA
     Route: 048
  5. LASIX [Concomitant]
     Indication: HYPERTENSION
     Route: 048

REACTIONS (2)
  - Malignant melanoma [Not Recovered/Not Resolved]
  - Squamous cell carcinoma [Unknown]
